FAERS Safety Report 19085435 (Version 5)
Quarter: 2023Q1

REPORT INFORMATION
  Report Type: Report from Study
  Country: FR (occurrence: None)
  Receive Date: 20210401
  Receipt Date: 20230304
  Transmission Date: 20230417
  Serious: Yes (Other)
  Sender: FDA-Public Use
  Company Number: FR-ROCHE-2796599

PATIENT
  Age: 44 Year
  Sex: Female

DRUGS (3)
  1. ATEZOLIZUMAB [Suspect]
     Active Substance: ATEZOLIZUMAB
     Indication: Cervix carcinoma
     Route: 042
  2. XANAX [Concomitant]
     Active Substance: ALPRAZOLAM
     Dosage: LAST DOSE TAKEN ON 05-MAR-2021
     Route: 048
  3. SEDATIF PC [Concomitant]
     Active Substance: HOMEOPATHICS
     Dates: start: 20210306

REACTIONS (2)
  - Hyperthyroidism [Recovered/Resolved with Sequelae]
  - Hypothyroidism [Recovered/Resolved]

NARRATIVE: CASE EVENT DATE: 20210105
